FAERS Safety Report 23936371 (Version 1)
Quarter: 2024Q2

REPORT INFORMATION
  Report Type: Spontaneous
  Country: IR (occurrence: IR)
  Receive Date: 20240604
  Receipt Date: 20240604
  Transmission Date: 20240716
  Serious: Yes (Death, Hospitalization)
  Sender: FDA-Public Use
  Company Number: IR-STRIDES ARCOLAB LIMITED-2024SP006365

PATIENT
  Age: 39 Year
  Sex: Male

DRUGS (2)
  1. HYDROCORTISONE [Suspect]
     Active Substance: HYDROCORTISONE
     Indication: Accidental poisoning
     Dosage: UNK
     Route: 065
  2. EPINEPHRINE [Suspect]
     Active Substance: EPINEPHRINE
     Indication: Accidental poisoning
     Dosage: UNK
     Route: 065

REACTIONS (1)
  - Drug ineffective [Fatal]
